FAERS Safety Report 21688606 (Version 1)
Quarter: 2022Q4

REPORT INFORMATION
  Report Type: Spontaneous
  Country: US (occurrence: US)
  Receive Date: 20221206
  Receipt Date: 20221206
  Transmission Date: 20230112
  Serious: No
  Sender: FDA-Public Use
  Company Number: US-PFIZER INC-202201346174

PATIENT
  Age: 59 Year
  Sex: Female
  Weight: 56.7 kg

DRUGS (1)
  1. PAXLOVID [Suspect]
     Active Substance: NIRMATRELVIR\RITONAVIR
     Indication: COVID-19 treatment
     Dosage: UNK (PRESCRIBED TO BE TAKEN FOR 5 DAYS IN MORNING AND NIGHT)
     Dates: start: 20221201

REACTIONS (2)
  - Taste disorder [Unknown]
  - Product taste abnormal [Unknown]
